FAERS Safety Report 10409787 (Version 1)
Quarter: 2014Q3

REPORT INFORMATION
  Report Type: Report from Study
  Country: US (occurrence: US)
  Receive Date: 20140826
  Receipt Date: 20140826
  Transmission Date: 20150326
  Serious: Yes (Other)
  Sender: FDA-Public Use
  Company Number: US-CELGENEUS-163-21880-14083781

PATIENT
  Age: 66 Year

DRUGS (1)
  1. REVLIMID [Suspect]
     Active Substance: LENALIDOMIDE
     Indication: PRODUCT USED FOR UNKNOWN INDICATION
     Dosage: 10 MILLIGRAM
     Route: 048
     Dates: start: 20130128, end: 20130408

REACTIONS (3)
  - Ileus [Unknown]
  - Influenza [Unknown]
  - Neutropenia [Unknown]

NARRATIVE: CASE EVENT DATE: 20130131
